FAERS Safety Report 10878435 (Version 1)
Quarter: 2015Q1

REPORT INFORMATION
  Report Type: Spontaneous
  Country: US (occurrence: US)
  Receive Date: 20150302
  Receipt Date: 20150302
  Transmission Date: 20150721
  Serious: No
  Sender: FDA-Public Use
  Company Number: US-ABBVIE-14P-163-1255138-00

PATIENT
  Sex: Male
  Weight: 88.98 kg

DRUGS (2)
  1. ANDROGEL [Suspect]
     Active Substance: TESTOSTERONE
     Indication: PRODUCT USED FOR UNKNOWN INDICATION
     Dosage: FOUR PUMPS DAILY
     Route: 061
     Dates: start: 201304, end: 201308
  2. ANDROGEL [Suspect]
     Active Substance: TESTOSTERONE
     Dosage: SIX PUMPS DAILY
     Route: 061
     Dates: start: 201308

REACTIONS (4)
  - Drug administration error [Not Recovered/Not Resolved]
  - Application site reaction [Unknown]
  - Blood testosterone decreased [Not Recovered/Not Resolved]
  - Asthenia [Not Recovered/Not Resolved]

NARRATIVE: CASE EVENT DATE: 2014
